FAERS Safety Report 8156322-4 (Version None)
Quarter: 2012Q1

REPORT INFORMATION
  Report Type: 
  Country: None (occurrence: None)
  Receive Date: 20120222
  Receipt Date: 20110915
  Transmission Date: 20120608
  Serious: No
  Sender: FDA-Public Use
  Company Number: US-BRISTOL-MYERS SQUIBB COMPANY-15911290

PATIENT

DRUGS (1)
  1. KENALOG [Suspect]
     Dosage: TOOK ONLY ONE TIME
     Route: 030

REACTIONS (1)
  - DEHYDROEPIANDROSTERONE INCREASED [None]
